FAERS Safety Report 10466996 (Version 1)
Quarter: 2014Q3

REPORT INFORMATION
  Report Type: Spontaneous
  Country: US (occurrence: None)
  Receive Date: 20140919
  Receipt Date: 20140919
  Transmission Date: 20150326
  Serious: Yes (Hospitalization)
  Sender: FDA-Public Use
  Company Number: None

PATIENT
  Sex: Male
  Weight: 68.6 kg

DRUGS (2)
  1. OLYSIO [Suspect]
     Active Substance: SIMEPREVIR
     Dosage: 150 MG, QDAY, ORAL
     Route: 048
     Dates: start: 20140306
  2. SOVALDI [Suspect]
     Active Substance: SOFOSBUVIR
     Dosage: 400 MG, QDAY, ORAL
     Route: 048
     Dates: start: 20140306

REACTIONS (1)
  - Groin pain [None]

NARRATIVE: CASE EVENT DATE: 20140324
